FAERS Safety Report 7382131-X (Version None)
Quarter: 2011Q1

REPORT INFORMATION
  Report Type: 
  Country: None (occurrence: None)
  Receive Date: 20110329
  Receipt Date: 20110314
  Transmission Date: 20110831
  Serious: Yes (Other)
  Sender: FDA-Public Use
  Company Number: US-ELI_LILLY_AND_COMPANY-US201010002694

PATIENT
  Sex: Female

DRUGS (8)
  1. PERCOCET [Concomitant]
     Indication: PAIN
     Dates: start: 20101001
  2. FORTEO [Suspect]
     Dosage: 20 UG, DAILY (1/D)
  3. OXYCONTIN [Concomitant]
     Indication: PAIN
     Dates: start: 20101001
  4. FENTANYL [Concomitant]
     Indication: PAIN
     Dates: start: 20101001
  5. FORTEO [Suspect]
     Dosage: 20 UG, DAILY (1/D)
  6. FORTEO [Suspect]
     Dosage: 20 UG, DAILY (1/D)
  7. FORTEO [Suspect]
     Indication: OSTEOPOROSIS
     Dosage: 20 UG, DAILY (1/D)
     Dates: start: 20100921
  8. ANALGESICS [Concomitant]

REACTIONS (10)
  - FRACTURE NONUNION [None]
  - DYSSTASIA [None]
  - MONOPARESIS [None]
  - ARTHRALGIA [None]
  - ANXIETY [None]
  - MUSCLE SPASMS [None]
  - PAIN IN EXTREMITY [None]
  - FALL [None]
  - ASTHENIA [None]
  - LIMB DISCOMFORT [None]
